FAERS Safety Report 6132588-7 (Version None)
Quarter: 2009Q1

REPORT INFORMATION
  Report Type: 
  Country: None (occurrence: None)
  Receive Date: 20090324
  Receipt Date: 20090312
  Transmission Date: 20090719
  Serious: Yes (Other)
  Sender: FDA-Public Use
  Company Number: GXKR2009ES02485

PATIENT
  Age: 78 Year
  Sex: Female

DRUGS (3)
  1. VALPROIC ACID [Suspect]
     Indication: CONVULSION
     Dosage: 500 MG, Q8H,
     Dates: start: 20080201
  2. VALPROIC ACID [Suspect]
     Indication: SYNCOPE
     Dosage: 500 MG, Q8H,
     Dates: start: 20080201
  3. DONEPEZIL HCL [Concomitant]

REACTIONS (15)
  - AMIMIA [None]
  - BRADYKINESIA [None]
  - BRADYPHRENIA [None]
  - COGNITIVE DISORDER [None]
  - DISORIENTATION [None]
  - DISTURBANCE IN ATTENTION [None]
  - FALL [None]
  - GAIT DISTURBANCE [None]
  - HYPERTONIA [None]
  - HYPOPHONESIS [None]
  - HYPOREFLEXIA [None]
  - MEMORY IMPAIRMENT [None]
  - MUSCLE RIGIDITY [None]
  - PARKINSONISM [None]
  - URINARY INCONTINENCE [None]
